FAERS Safety Report 22137624 (Version 2)
Quarter: 2023Q2

REPORT INFORMATION
  Report Type: Spontaneous
  Country: US (occurrence: US)
  Receive Date: 20230325
  Receipt Date: 20230403
  Transmission Date: 20230722
  Serious: No
  Sender: FDA-Public Use
  Company Number: US-ABBVIE-4703208

PATIENT
  Sex: Male

DRUGS (11)
  1. LUPRON DEPOT [Suspect]
     Active Substance: LEUPROLIDE ACETATE
     Indication: Product used for unknown indication
     Dosage: 11.25 MG
     Route: 065
  2. LUPRON DEPOT [Suspect]
     Active Substance: LEUPROLIDE ACETATE
     Dosage: 11.25 MG
     Route: 065
  3. LUPRON DEPOT [Suspect]
     Active Substance: LEUPROLIDE ACETATE
     Route: 065
     Dates: start: 20180306, end: 20220408
  4. FOSAMAX [Concomitant]
     Active Substance: ALENDRONATE SODIUM
     Indication: Product used for unknown indication
     Route: 048
  5. XTANDI [Suspect]
     Active Substance: ENZALUTAMIDE
     Indication: Prostate cancer
     Dosage: FORM STRENGTH: 120 MILLIGRAMS
     Route: 048
     Dates: start: 20190815, end: 20200415
  6. XTANDI [Suspect]
     Active Substance: ENZALUTAMIDE
     Indication: Prostate cancer
     Dosage: FORM STRENGTH: 120 MILLIGRAMS
     Route: 048
     Dates: start: 20200416
  7. FOSAMAX [Concomitant]
     Active Substance: ALENDRONATE SODIUM
     Indication: Product used for unknown indication
     Route: 048
  8. GLUCOSAMINE [Concomitant]
     Active Substance: GLUCOSAMINE
     Indication: Product used for unknown indication
     Route: 048
  9. CASODEX [Concomitant]
     Active Substance: BICALUTAMIDE
     Indication: Product used for unknown indication
     Route: 048
  10. CASODEX [Concomitant]
     Active Substance: BICALUTAMIDE
     Indication: Product used for unknown indication
     Route: 048
  11. LISINOPRIL [Concomitant]
     Active Substance: LISINOPRIL
     Indication: Product used for unknown indication
     Route: 048

REACTIONS (9)
  - Nervousness [Unknown]
  - Dizziness [Unknown]
  - Fatigue [Unknown]
  - Off label use [Unknown]
  - Paraesthesia [Unknown]
  - Feeling hot [Unknown]
  - Lacrimation increased [Unknown]
  - Hot flush [Unknown]
  - Hyperhidrosis [Unknown]
